FAERS Safety Report 4458875-6 (Version None)
Quarter: 2004Q3

REPORT INFORMATION
  Report Type: 
  Country: None (occurrence: None)
  Receive Date: 20040921
  Receipt Date: 20040921
  Transmission Date: 20050211
  Serious: Yes (Death)
  Sender: FDA-Public Use
  Company Number: None

PATIENT
  Age: 71 Year
  Sex: Female
  Weight: 68.0396 kg

DRUGS (1)
  1. WINRHO [Suspect]
     Dates: start: 20040720, end: 20040720

REACTIONS (4)
  - BACK PAIN [None]
  - DIALYSIS [None]
  - EMOTIONAL DISTRESS [None]
  - TREMOR [None]
